FAERS Safety Report 10016372 (Version 1)
Quarter: 2014Q1

REPORT INFORMATION
  Report Type: Report from Study
  Country: US (occurrence: US)
  Receive Date: 20140317
  Receipt Date: 20140317
  Transmission Date: 20141002
  Serious: Yes (Death, Other)
  Sender: FDA-Public Use
  Company Number: US-BAXTER-2014BAX013121

PATIENT
  Age: 32 Year
  Sex: Female

DRUGS (12)
  1. CYCLOPHOSPHAMIDE FOR INJECTION, USP [Suspect]
     Indication: PULMONARY ALVEOLAR HAEMORRHAGE
     Dosage: 1 DOSE
     Route: 042
  2. CYCLOPHOSPHAMIDE FOR INJECTION, USP [Suspect]
     Indication: ANTIPHOSPHOLIPID SYNDROME
  3. GAMMAGARD LIQUID [Suspect]
     Indication: PULMONARY ALVEOLAR HAEMORRHAGE
     Dosage: 1 GM/KG
     Route: 042
  4. GAMMAGARD LIQUID [Suspect]
     Indication: ANTIPHOSPHOLIPID SYNDROME
  5. MYCOPHENOLATE MOFETIL [Suspect]
     Indication: PULMONARY ALVEOLAR HAEMORRHAGE
     Route: 048
  6. MYCOPHENOLATE MOFETIL [Suspect]
     Indication: ANTIPHOSPHOLIPID SYNDROME
  7. RITUXIMAB [Suspect]
     Indication: PULMONARY ALVEOLAR HAEMORRHAGE
     Dosage: X 4 DOSES
  8. RITUXIMAB [Suspect]
     Indication: ANTIPHOSPHOLIPID SYNDROME
  9. BORTEZOMIB [Suspect]
     Indication: PULMONARY ALVEOLAR HAEMORRHAGE
     Dosage: 1 DOSE
     Route: 042
  10. BORTEZOMIB [Suspect]
     Indication: ANTIPHOSPHOLIPID SYNDROME
  11. ALEMTUZUMAB [Suspect]
     Indication: PULMONARY ALVEOLAR HAEMORRHAGE
     Route: 058
  12. ALEMTUZUMAB [Suspect]
     Indication: ANTIPHOSPHOLIPID SYNDROME

REACTIONS (3)
  - Disease progression [Unknown]
  - Pulmonary alveolar haemorrhage [Fatal]
  - Cerebrovascular accident [Fatal]
